FAERS Safety Report 19026597 (Version 1)
Quarter: 2021Q1

REPORT INFORMATION
  Report Type: Spontaneous
  Country: US (occurrence: US)
  Receive Date: 20210318
  Receipt Date: 20210318
  Transmission Date: 20210420
  Serious: Yes (Other)
  Sender: FDA-Public Use
  Company Number: US-CLINIGEN GROUP PLC/ CLINIGEN HEALTHCARE LTD-US-CLGN-21-00126

PATIENT
  Age: 15 Year
  Sex: Male

DRUGS (9)
  1. CYCLOPHOSPHAMIDE. [Concomitant]
     Active Substance: CYCLOPHOSPHAMIDE
     Indication: RADIOTHERAPY
  2. PAZOPANIB [Concomitant]
     Active Substance: PAZOPANIB
     Indication: RADIOTHERAPY
  3. DEXRAZOXANE HCL [Suspect]
     Active Substance: DEXRAZOXANE HYDROCHLORIDE
     Indication: RADIOTHERAPY
  4. IRINOTECAN [Concomitant]
     Active Substance: IRINOTECAN
     Indication: RADIOTHERAPY
  5. DOXORUBICIN [Concomitant]
     Active Substance: DOXORUBICIN
     Indication: RADIOTHERAPY
  6. OLARATUMAB [Concomitant]
     Active Substance: OLARATUMAB
     Indication: RADIOTHERAPY
  7. VINCRISTINE [Concomitant]
     Active Substance: VINCRISTINE
     Indication: RADIOTHERAPY
  8. TEMODAR [Concomitant]
     Active Substance: TEMOZOLOMIDE
     Indication: RADIOTHERAPY
  9. TOPOTECAN [Concomitant]
     Active Substance: TOPOTECAN HYDROCHLORIDE
     Indication: RADIOTHERAPY

REACTIONS (1)
  - Off label use [Unknown]
